FAERS Safety Report 22635234 (Version 1)
Quarter: 2023Q2

REPORT INFORMATION
  Report Type: Spontaneous
  Country: US (occurrence: None)
  Receive Date: 20230622
  Receipt Date: 20230622
  Transmission Date: 20230721
  Serious: Yes (Other)
  Sender: FDA-Public Use
  Company Number: None

PATIENT
  Age: 58 Year
  Sex: Male
  Weight: 112.5 kg

DRUGS (2)
  1. IODOSORB [Suspect]
     Active Substance: CADEXOMER IODINE
     Indication: Blister
     Route: 061
     Dates: start: 20230615, end: 20230620
  2. UNSPECIFIED INGREDIENT [Concomitant]
     Active Substance: UNSPECIFIED INGREDIENT

REACTIONS (3)
  - Impaired healing [None]
  - Wound complication [None]
  - Wound secretion [None]

NARRATIVE: CASE EVENT DATE: 20230619
